FAERS Safety Report 9361270 (Version 2)
Quarter: 2015Q1

REPORT INFORMATION
  Report Type: Report from Study
  Country: US (occurrence: US)
  Receive Date: 20130621
  Receipt Date: 20150204
  Transmission Date: 20150721
  Serious: Yes (Hospitalization)
  Sender: FDA-Public Use
  Company Number: US-009507513-1306USA006103

PATIENT
  Age: 61 Year
  Sex: Male

DRUGS (16)
  1. TEMODAR [Suspect]
     Active Substance: TEMOZOLOMIDE
     Dosage: UNK
     Route: 048
     Dates: start: 20130520
  2. TYLENOL [Concomitant]
     Active Substance: ACETAMINOPHEN
     Dosage: UNK, PRN
  3. NOVOLOG [Concomitant]
     Active Substance: INSULIN ASPART
     Dosage: UNK
  4. DEXAMETHASONE. [Concomitant]
     Active Substance: DEXAMETHASONE
     Dosage: 32MG(16 MG, 2 IN 1 D)
  5. TEMODAR [Suspect]
     Active Substance: TEMOZOLOMIDE
     Dosage: UNK
     Route: 048
     Dates: start: 20130517
  6. LISINOPRIL. [Concomitant]
     Active Substance: LISINOPRIL
     Dosage: NK UNK, QD
  7. HYDRALAZINE HYDROCHLORIDE. [Concomitant]
     Active Substance: HYDRALAZINE HYDROCHLORIDE
     Dosage: 10 MT, Q8H
  8. KEPPRA [Concomitant]
     Active Substance: LEVETIRACETAM
     Dosage: 2000MG (1000 MG,1 IN 12 HR)
  9. ZOFRAN [Concomitant]
     Active Substance: ONDANSETRON HYDROCHLORIDE
     Dosage: 8 MG, UNK
  10. TEMODAR [Suspect]
     Active Substance: TEMOZOLOMIDE
     Dosage: UNK
     Route: 048
     Dates: start: 20130527
  11. MICARDIS [Concomitant]
     Active Substance: TELMISARTAN
     Dosage: UNK UNK, QD
  12. BEVACIZUMAB [Suspect]
     Active Substance: BEVACIZUMAB
     Indication: GLIOBLASTOMA
     Dosage: 10MG/KG(800 MG, ONCE IN 2 WEEK)
     Route: 042
     Dates: start: 20130317
  13. ZANTAC [Concomitant]
     Active Substance: RANITIDINE HYDROCHLORIDE
     Dosage: 300MG (150MG ,1 IN 12 HR)
  14. RISPERDAL [Concomitant]
     Active Substance: RISPERIDONE
     Dosage: 1 MG, HS
  15. TEMODAR [Suspect]
     Active Substance: TEMOZOLOMIDE
     Indication: GLIOBLASTOMA
     Dosage: 75 MG/M2, (150 MG DAILY)
     Route: 048
     Dates: start: 20130509
  16. FLEXERIL [Concomitant]
     Active Substance: CYCLOBENZAPRINE HYDROCHLORIDE
     Dosage: 10 MG 3 TIMES A DAY AS NEEDED

REACTIONS (6)
  - Pyrexia [Unknown]
  - Pyrexia [Recovered/Resolved]
  - Hypertension [Unknown]
  - Confusional state [Recovered/Resolved]
  - Haemorrhage intracranial [Unknown]
  - Alanine aminotransferase increased [Unknown]

NARRATIVE: CASE EVENT DATE: 20130510
